FAERS Safety Report 5178997-4 (Version None)
Quarter: 2006Q4

REPORT INFORMATION
  Report Type: 
  Country: None (occurrence: None)
  Receive Date: 20061215
  Receipt Date: 20061215
  Transmission Date: 20070319
  Serious: Yes (Other)
  Sender: FDA-Public Use
  Company Number: None

PATIENT
  Age: 53 Year
  Sex: Male
  Weight: 93.8946 kg

DRUGS (3)
  1. LYRICA [Suspect]
     Indication: INTERVERTEBRAL DISC PROTRUSION
     Dosage: 75MG  1 TWICE DAILY
     Dates: start: 20060907, end: 20061128
  2. LYRICA [Suspect]
     Indication: NERVE INJURY
     Dosage: 75MG  1 TWICE DAILY
     Dates: start: 20060907, end: 20061128
  3. LYRICA [Suspect]
     Indication: SCIATICA
     Dosage: 75MG  1 TWICE DAILY
     Dates: start: 20060907, end: 20061128

REACTIONS (4)
  - CRYING [None]
  - SCIATICA [None]
  - SELF ESTEEM DECREASED [None]
  - SUICIDAL IDEATION [None]
